FAERS Safety Report 11274460 (Version 2)
Quarter: 2016Q2

REPORT INFORMATION
  Report Type: Report from Study
  Country: US (occurrence: US)
  Receive Date: 20150715
  Receipt Date: 20160421
  Transmission Date: 20160815
  Serious: Yes (Hospitalization)
  Sender: FDA-Public Use
  Company Number: US-ACTELION-A-NJ2015-120901

PATIENT
  Age: 26 Year
  Sex: Female

DRUGS (4)
  1. CIALIS [Concomitant]
     Active Substance: TADALAFIL
  2. PROCARDIA [Concomitant]
     Active Substance: NIFEDIPINE
  3. COUMADIN [Concomitant]
     Active Substance: WARFARIN SODIUM
  4. MACITENTAN [Suspect]
     Active Substance: MACITENTAN
     Indication: PULMONARY HYPERTENSION
     Dosage: 10 MG, QD
     Route: 048
     Dates: start: 20150720

REACTIONS (4)
  - Mass excision [Unknown]
  - Soft tissue mass [Unknown]
  - Biopsy [Unknown]
  - Peripheral swelling [Unknown]
